FAERS Safety Report 7557186-X (Version None)
Quarter: 2011Q2

REPORT INFORMATION
  Report Type: 
  Country: None (occurrence: None)
  Receive Date: 20110620
  Receipt Date: 20110610
  Transmission Date: 20111010
  Serious: Yes (Other)
  Sender: FDA-Public Use
  Company Number: US-US-EMD SERONO, INC.-7022851

PATIENT
  Sex: Female
  Weight: 91 kg

DRUGS (4)
  1. IBUPROFEN (ADVIL) [Concomitant]
     Indication: PAIN
  2. REBIF [Suspect]
     Indication: MULTIPLE SCLEROSIS
     Route: 058
     Dates: start: 20100923, end: 20101018
  3. REBIF [Suspect]
     Route: 058
  4. SYNTHROID [Concomitant]
     Indication: HYPOTHYROIDISM

REACTIONS (2)
  - OPTIC NEURITIS [None]
  - STRESS [None]
